FAERS Safety Report 9264102 (Version 2)
Quarter: 2013Q2

REPORT INFORMATION
  Report Type: Spontaneous
  Country: US (occurrence: US)
  Receive Date: 20130430
  Receipt Date: 20130613
  Transmission Date: 20140414
  Serious: Yes (Death, Hospitalization, Other)
  Sender: FDA-Public Use
  Company Number: US-B.I. PHARMACEUTICALS,INC./RIDGEFIELD-2013-BI-11719BP

PATIENT
  Age: 74 Year
  Sex: Female
  Weight: 58.97 kg

DRUGS (3)
  1. PRADAXA [Suspect]
     Indication: ANTICOAGULANT THERAPY
     Route: 048
     Dates: start: 20110301, end: 20110508
  2. PRADAXA [Suspect]
     Indication: ATRIAL FIBRILLATION
  3. LEVAQUIN [Concomitant]
     Indication: BRONCHITIS

REACTIONS (3)
  - Haemorrhage intracranial [Fatal]
  - Intraventricular haemorrhage [Fatal]
  - Fall [Unknown]
